FAERS Safety Report 8803099 (Version 1)
Quarter: 2012Q4

REPORT INFORMATION
  Report Type: 
  Country: US (occurrence: US)
  Receive Date: 20120924
  Receipt Date: 20120924
  Transmission Date: 20130627
  Serious: Yes (Other)
  Sender: FDA-Public Use
  Company Number: US-TEVA-359994USA

PATIENT
  Sex: Female
  Weight: 69.92 kg

DRUGS (5)
  1. NUVIGIL [Suspect]
     Indication: CIRCADIAN RHYTHM SLEEP DISORDER
     Dosage: 150 mg (1/2 tablet) or 250 mg (1/4 tablet) prn
     Route: 048
     Dates: start: 2009
  2. ZOLPIDEM [Concomitant]
     Indication: SLEEP DISORDER
     Dosage: 10 Milligram Daily;
     Route: 048
  3. XANAX [Concomitant]
     Dosage: 3-4 times daily as need
     Route: 048
  4. SUBOXONE [Concomitant]
     Dosage: little pieces
     Route: 048
  5. VITAMIN D [Concomitant]
     Indication: SUPPLEMENTATION THERAPY
     Dosage: 300 Unknown Daily;
     Route: 048

REACTIONS (6)
  - Rash erythematous [Not Recovered/Not Resolved]
  - Fall [Recovered/Resolved]
  - Humerus fracture [Recovered/Resolved]
  - Foot fracture [Recovered/Resolved]
  - Foot fracture [Recovered/Resolved]
  - Insomnia [Not Recovered/Not Resolved]
